FAERS Safety Report 7476283-0 (Version None)
Quarter: 2011Q2

REPORT INFORMATION
  Report Type: 
  Country: None (occurrence: None)
  Receive Date: 20110512
  Receipt Date: 20110502
  Transmission Date: 20111010
  Serious: Yes (Other)
  Sender: FDA-Public Use
  Company Number: US-BAYER-2011-038204

PATIENT
  Age: 47 Year
  Sex: Female

DRUGS (2)
  1. MIRENA [Suspect]
     Indication: MENORRHAGIA
     Dosage: 20 ?G, CONT
     Route: 015
     Dates: start: 20110418
  2. ADVIL LIQUI-GELS [Concomitant]

REACTIONS (3)
  - MENORRHAGIA [None]
  - IMPATIENCE [None]
  - ABDOMINAL PAIN [None]
